FAERS Safety Report 13379263 (Version 1)
Quarter: 2017Q1

REPORT INFORMATION
  Report Type: Spontaneous
  Country: US (occurrence: US)
  Receive Date: 20170328
  Receipt Date: 20170328
  Transmission Date: 20170429
  Serious: No
  Sender: FDA-Public Use
  Company Number: US-ROCHE-GNE323181

PATIENT
  Age: 68 Year
  Sex: Female
  Weight: 101.24 kg

DRUGS (1)
  1. XOLAIR [Suspect]
     Active Substance: OMALIZUMAB
     Indication: ASTHMA
     Dosage: 150 MG, Q4W
     Route: 058
     Dates: start: 20050913, end: 20110812

REACTIONS (3)
  - Flushing [None]
  - Ocular hyperaemia [None]
  - Rash erythematous [Recovered/Resolved]

NARRATIVE: CASE EVENT DATE: 20110813
